FAERS Safety Report 4870105-X (Version None)
Quarter: 2005Q4

REPORT INFORMATION
  Report Type: 
  Country: None (occurrence: None)
  Receive Date: 20051229
  Receipt Date: 20051229
  Transmission Date: 20060501
  Serious: Yes (Life-Threatening, Hospitalization, Other)
  Sender: FDA-Public Use
  Company Number: None

PATIENT
  Sex: Male
  Weight: 79.9 kg

DRUGS (8)
  1. AQUAMEPHYTON [Suspect]
     Indication: INTERNATIONAL NORMALISED RATIO INCREASED
     Dosage: 5MG   ONCE   IV DRIP
     Route: 041
     Dates: start: 20051128
  2. SIMVASTATIN [Concomitant]
  3. ASPIRIN [Concomitant]
  4. AUGMENTIN '125' [Concomitant]
  5. METOPROLOL [Concomitant]
  6. PLAVIX [Concomitant]
  7. ISOSORBIDE MN [Concomitant]
  8. COLACE [Concomitant]

REACTIONS (1)
  - ACUTE RESPIRATORY FAILURE [None]
